FAERS Safety Report 8804935 (Version 3)
Quarter: 2014Q3

REPORT INFORMATION
  Report Type: Report from Study
  Country: US (occurrence: US)
  Receive Date: 20120924
  Receipt Date: 20140908
  Transmission Date: 20150326
  Serious: Yes (Death, Other)
  Sender: FDA-Public Use
  Company Number: US-ROCHE-1128553

PATIENT
  Age: 66 Year
  Sex: Male
  Weight: 76.81 kg

DRUGS (3)
  1. AVASTIN [Suspect]
     Active Substance: BEVACIZUMAB
     Indication: BRAIN NEOPLASM MALIGNANT
     Route: 042
     Dates: start: 20070727, end: 20070912
  2. CARBOPLATIN. [Concomitant]
     Active Substance: CARBOPLATIN
  3. AVASTIN [Suspect]
     Active Substance: BEVACIZUMAB
     Indication: GLIOBLASTOMA
     Route: 042

REACTIONS (7)
  - Erythema [Recovered/Resolved]
  - Tenderness [Recovered/Resolved]
  - Oedema [Recovered/Resolved]
  - Neoplasm progression [Fatal]
  - Haemorrhage [Unknown]
  - Hemiplegia [Unknown]
  - Platelet count decreased [Unknown]

NARRATIVE: CASE EVENT DATE: 20071027
